FAERS Safety Report 6307005-4 (Version None)
Quarter: 2009Q3

REPORT INFORMATION
  Report Type: 
  Country: None (occurrence: None)
  Receive Date: 20090812
  Receipt Date: 20090728
  Transmission Date: 20100115
  Serious: Yes (Other)
  Sender: FDA-Public Use
  Company Number: PHHY2009MX32985

PATIENT
  Age: 55 Year
  Sex: Male

DRUGS (1)
  1. VOLTAREN NURO [Suspect]
     Dosage: 1 DF, ONCE/SINGLE
     Route: 048
     Dates: start: 20090630, end: 20090630

REACTIONS (7)
  - BURNS SECOND DEGREE [None]
  - DERMATITIS EXFOLIATIVE [None]
  - FACE OEDEMA [None]
  - LIP OEDEMA [None]
  - MYALGIA [None]
  - PHOTOSENSITIVITY REACTION [None]
  - PYREXIA [None]
